FAERS Safety Report 6612696-4 (Version None)
Quarter: 2010Q1

REPORT INFORMATION
  Report Type: 
  Country: None (occurrence: None)
  Receive Date: 20100303
  Receipt Date: 20100128
  Transmission Date: 20100710
  Serious: Yes (Other)
  Sender: FDA-Public Use
  Company Number: JP-PFIZER INC-2009307717

PATIENT
  Age: 76 Year
  Sex: Male

DRUGS (6)
  1. VFEND [Suspect]
     Indication: BRONCHOPULMONARY ASPERGILLOSIS
     Dosage: UNK
     Route: 042
  2. VFEND [Suspect]
     Dosage: 400 MG/DAY
     Route: 048
     Dates: start: 20090330, end: 20091203
  3. THEOLONG [Concomitant]
     Route: 048
  4. MUCODYNE [Concomitant]
     Route: 048
  5. MAGNESIUM OXIDE [Concomitant]
     Route: 048
  6. THYRADIN S [Concomitant]
     Route: 048

REACTIONS (2)
  - MUSCULAR WEAKNESS [None]
  - VISION BLURRED [None]
